FAERS Safety Report 7707674-8 (Version None)
Quarter: 2011Q3

REPORT INFORMATION
  Report Type: 
  Country: None (occurrence: None)
  Receive Date: 20110824
  Receipt Date: 20110817
  Transmission Date: 20111222
  Serious: Yes (Hospitalization, Other)
  Sender: FDA-Public Use
  Company Number: PHHY2011TW74984

PATIENT
  Age: 25 Year
  Sex: Male

DRUGS (3)
  1. ZOLPIDEM [Suspect]
     Indication: MAJOR DEPRESSION
     Dosage: 10 MG, 2 TO 3 TABLETS
     Route: 048
  2. ZOLPIDEM [Suspect]
     Dosage: 30 MG, UNK
     Route: 048
  3. ZOLPIDEM [Suspect]
     Dosage: 150 TO 200 MG, UNK
     Route: 048

REACTIONS (9)
  - DEPRESSED MOOD [None]
  - CONVULSION [None]
  - ACUTE PSYCHOSIS [None]
  - DELIRIUM [None]
  - DRUG TOLERANCE [None]
  - CHEST DISCOMFORT [None]
  - DRUG DEPENDENCE [None]
  - DRUG WITHDRAWAL SYNDROME [None]
  - ANXIETY [None]
